FAERS Safety Report 6356921-6 (Version None)
Quarter: 2009Q3

REPORT INFORMATION
  Report Type: 
  Country: None (occurrence: None)
  Receive Date: 20090915
  Receipt Date: 20090904
  Transmission Date: 20100115
  Serious: Yes (Death)
  Sender: FDA-Public Use
  Company Number: DE-GENENTECH-252385

PATIENT
  Sex: Female
  Weight: 65 kg

DRUGS (11)
  1. RITUXIMAB [Suspect]
     Indication: RHEUMATOID ARTHRITIS
     Dosage: 1 G, UNK
     Route: 042
     Dates: start: 20070904, end: 20070918
  2. TOCILIZUMAB [Concomitant]
     Indication: DRUG USE FOR UNKNOWN INDICATION
     Dosage: UNK
     Dates: start: 20050901, end: 20070801
  3. METHOTREXATE [Concomitant]
     Indication: DRUG USE FOR UNKNOWN INDICATION
     Dosage: UNK
     Dates: start: 20030501, end: 20071101
  4. PREDNISOLONE [Concomitant]
     Indication: DRUG USE FOR UNKNOWN INDICATION
  5. CELEBREX [Concomitant]
     Indication: DRUG USE FOR UNKNOWN INDICATION
  6. NEURONTIN [Concomitant]
     Indication: DRUG USE FOR UNKNOWN INDICATION
  7. NEXIUM [Concomitant]
     Indication: DRUG USE FOR UNKNOWN INDICATION
  8. CALCIMAGON-D3 [Concomitant]
     Indication: DRUG USE FOR UNKNOWN INDICATION
  9. FOSAMAX [Concomitant]
     Indication: DRUG USE FOR UNKNOWN INDICATION
  10. STEROIDS (UNK INGREDIENTS) [Concomitant]
     Indication: DRUG USE FOR UNKNOWN INDICATION
     Dosage: UNK
     Dates: start: 20070805
  11. FOLIC ACID [Concomitant]
     Indication: DRUG USE FOR UNKNOWN INDICATION

REACTIONS (4)
  - PNEUMONIA [None]
  - PULMONARY EMBOLISM [None]
  - PULMONARY FIBROSIS [None]
  - RESPIRATORY FAILURE [None]
